FAERS Safety Report 13438915 (Version 1)
Quarter: 2017Q2

REPORT INFORMATION
  Report Type: Spontaneous
  Country: US (occurrence: US)
  Receive Date: 20170413
  Receipt Date: 20170413
  Transmission Date: 20170830
  Serious: No
  Sender: FDA-Public Use
  Company Number: US-ROCHE-1504692

PATIENT
  Sex: Female

DRUGS (4)
  1. ROCEPHIN [Suspect]
     Active Substance: CEFTRIAXONE SODIUM
     Indication: SINUSITIS
     Route: 065
  2. VIMPAT [Concomitant]
     Active Substance: LACOSAMIDE
  3. ZITHROMAX [Concomitant]
     Active Substance: AZITHROMYCIN DIHYDRATE
  4. ZONEGRAN [Concomitant]
     Active Substance: ZONISAMIDE

REACTIONS (2)
  - Staring [Unknown]
  - Aura [Unknown]
